FAERS Safety Report 8388440-X (Version None)
Quarter: 2012Q2

REPORT INFORMATION
  Report Type: 
  Country: None (occurrence: None)
  Receive Date: 20120525
  Receipt Date: 20120517
  Transmission Date: 20120825
  Serious: Yes (Hospitalization)
  Sender: FDA-Public Use
  Company Number: US-OPTIMER-20120065

PATIENT
  Sex: Male
  Weight: 90.703 kg

DRUGS (11)
  1. METFORMIN HCL [Concomitant]
     Indication: DIABETES MELLITUS
     Dosage: 1000 MG, QD
     Route: 048
  2. PRESERVISION EYE VITAMIN AND MINERAL SUPPL. [Concomitant]
     Indication: PROPHYLAXIS
     Dosage: UNK
     Route: 048
  3. ATENOLOL [Concomitant]
     Indication: HYPERTENSION
     Dosage: 100 MG, QD
     Route: 048
  4. DIFICID [Suspect]
     Dosage: 200 MG, BID
     Route: 048
     Dates: start: 20120515
  5. LISINOPRIL [Concomitant]
     Indication: HYPERTENSION
     Dosage: 40 MG, QD
     Route: 048
  6. FOLIC ACID [Concomitant]
     Dosage: UNK
  7. DIFICID [Suspect]
     Dosage: 200 MG, BID
     Route: 048
     Dates: start: 20111227, end: 20120101
  8. GLIPIZIDE [Concomitant]
     Indication: DIABETES MELLITUS
     Dosage: 10 MG, QD
     Route: 048
  9. IRON [Concomitant]
     Dosage: UNK
  10. DIFICID [Suspect]
     Indication: CLOSTRIDIUM DIFFICILE COLITIS
     Dosage: 200 MG, BID
     Route: 048
     Dates: start: 20110926, end: 20111001
  11. VITAMIN B-12 [Concomitant]
     Dosage: UNK

REACTIONS (5)
  - CEREBROVASCULAR ACCIDENT [None]
  - CLOSTRIDIUM DIFFICILE COLITIS [None]
  - CONVULSION [None]
  - DISEASE RECURRENCE [None]
  - DIARRHOEA [None]
